FAERS Safety Report 13953265 (Version 1)
Quarter: 2017Q3

REPORT INFORMATION
  Report Type: Spontaneous
  Country: US (occurrence: US)
  Receive Date: 20170911
  Receipt Date: 20170911
  Transmission Date: 20171128
  Serious: No
  Sender: FDA-Public Use
  Company Number: US-TEVA-785812USA

PATIENT
  Sex: Female

DRUGS (1)
  1. EFFEXOR XR [Suspect]
     Active Substance: VENLAFAXINE HYDROCHLORIDE
     Dates: start: 20170614

REACTIONS (3)
  - Energy increased [Unknown]
  - Psychomotor hyperactivity [Unknown]
  - Amphetamines positive [Unknown]
